FAERS Safety Report 22595109 (Version 1)
Quarter: 2023Q2

REPORT INFORMATION
  Report Type: Spontaneous
  Country: ES (occurrence: ES)
  Receive Date: 20230613
  Receipt Date: 20230613
  Transmission Date: 20230721
  Serious: Yes (Other)
  Sender: FDA-Public Use
  Company Number: ES-SUN PHARMACEUTICAL INDUSTRIES LTD-2023RR-393656

PATIENT
  Age: 45 Year
  Sex: Female

DRUGS (13)
  1. GEMCITABINE [Suspect]
     Active Substance: GEMCITABINE
     Indication: Cutaneous T-cell lymphoma
     Dosage: UNK
     Route: 065
  2. OXALIPLATIN [Suspect]
     Active Substance: OXALIPLATIN
     Indication: Cutaneous T-cell lymphoma
     Dosage: UNK
     Route: 065
  3. OXALIPLATIN [Suspect]
     Active Substance: OXALIPLATIN
     Dosage: UNK
  4. DEXAMETHASONE [Suspect]
     Active Substance: DEXAMETHASONE
     Indication: Cutaneous T-cell lymphoma
     Dosage: UNK
     Route: 065
  5. METHOTREXATE [Suspect]
     Active Substance: METHOTREXATE
     Indication: Cutaneous T-cell lymphoma
     Dosage: UNK
     Route: 065
  6. DOXORUBICIN [Suspect]
     Active Substance: DOXORUBICIN
     Indication: Cutaneous T-cell lymphoma
     Dosage: UNK
     Route: 065
  7. VINCRISTINE [Suspect]
     Active Substance: VINCRISTINE
     Indication: Cutaneous T-cell lymphoma
     Dosage: UNK
     Route: 065
  8. PREDNISONE [Suspect]
     Active Substance: PREDNISONE
     Indication: Cutaneous T-cell lymphoma
     Dosage: UNK
     Route: 065
  9. LEUCOVORIN CALCIUM [Suspect]
     Active Substance: LEUCOVORIN CALCIUM
     Indication: Cutaneous T-cell lymphoma
     Dosage: UNK
     Route: 065
  10. ASPARAGINASE [Suspect]
     Active Substance: ASPARAGINASE
     Indication: Cutaneous T-cell lymphoma
     Dosage: UNK
     Route: 065
  11. CYCLOPHOSPHAMIDE [Suspect]
     Active Substance: CYCLOPHOSPHAMIDE
     Indication: Cutaneous T-cell lymphoma
     Dosage: UNK
     Route: 065
  12. IFOSFAMIDE [Suspect]
     Active Substance: IFOSFAMIDE
     Indication: Cutaneous T-cell lymphoma
     Dosage: UNK
     Route: 065
  13. ETOPOSIDE [Suspect]
     Active Substance: ETOPOSIDE
     Indication: Cutaneous T-cell lymphoma
     Dosage: UNK
     Route: 065

REACTIONS (4)
  - Enteropathy-associated T-cell lymphoma [Unknown]
  - Abdominal pain [Unknown]
  - Drug ineffective [Unknown]
  - Neoplasm progression [Unknown]
